FAERS Safety Report 9857816 (Version 2)
Quarter: 2014Q1

REPORT INFORMATION
  Report Type: Other
  Country: GB (occurrence: GB)
  Receive Date: 20140131
  Receipt Date: 20140131
  Transmission Date: 20141002
  Serious: Yes (Other)
  Sender: FDA-Public Use
  Company Number: GB-BRISTOL-MYERS SQUIBB COMPANY-20109377

PATIENT
  Age: 66 Year
  Sex: Female

DRUGS (10)
  1. METFORMIN HCL [Suspect]
  2. LISINOPRIL [Suspect]
  3. LEVOTHYROXINE [Suspect]
  4. ORLISTAT [Suspect]
     Dosage: 360 MG:OCT2006 TO 2008 AND MAR2010 TO MAR2011
     Dates: start: 200610, end: 201103
  5. ROSUVASTATIN [Suspect]
  6. FUROSEMIDE [Suspect]
  7. GLICLAZIDE [Suspect]
  8. OMEPRAZOLE [Suspect]
  9. FLUOXETINE [Suspect]
  10. LERCANIDIPINE [Suspect]

REACTIONS (1)
  - Renal impairment [Not Recovered/Not Resolved]
